FAERS Safety Report 7321151-8 (Version None)
Quarter: 2011Q1

REPORT INFORMATION
  Report Type: 
  Country: None (occurrence: None)
  Receive Date: 20110228
  Receipt Date: 20110218
  Transmission Date: 20110831
  Serious: Yes (Hospitalization)
  Sender: FDA-Public Use
  Company Number: FR-NAPPMUNDI-GBR-2011-0007716

PATIENT
  Sex: Female

DRUGS (15)
  1. SIMVASTATIN [Concomitant]
  2. NEXIUM [Concomitant]
  3. ZYLORIC [Concomitant]
  4. CALCIDIA [Concomitant]
  5. DEDROGYL [Concomitant]
  6. PLAVIX [Concomitant]
  7. ADANCOR [Concomitant]
  8. HUMALOG [Concomitant]
  9. LANTUS [Concomitant]
  10. OXYCONTIN [Suspect]
     Indication: PAIN
     Dosage: 10 MG, BID
     Route: 048
     Dates: start: 20050401, end: 20101118
  11. DISCOTRINE [Concomitant]
  12. TRIATEC                            /00885601/ [Concomitant]
  13. LASIX [Concomitant]
  14. ISOPTIN [Concomitant]
  15. NEURONTIN [Concomitant]

REACTIONS (6)
  - FAECALOMA [None]
  - RENAL FAILURE [None]
  - HAEMOCONCENTRATION [None]
  - MIOSIS [None]
  - DISTURBANCE IN ATTENTION [None]
  - GENERALISED OEDEMA [None]
